FAERS Safety Report 13390954 (Version 1)
Quarter: 2017Q1

REPORT INFORMATION
  Report Type: Spontaneous
  Country: US (occurrence: US)
  Receive Date: 20170331
  Receipt Date: 20170331
  Transmission Date: 20170429
  Serious: No
  Sender: FDA-Public Use
  Company Number: None

PATIENT
  Age: 41 Year
  Sex: Male
  Weight: 65.25 kg

DRUGS (8)
  1. TADALAFIL [Concomitant]
     Active Substance: TADALAFIL
  2. VENLAFAXINE HCL [Concomitant]
     Active Substance: VENLAFAXINE HYDROCHLORIDE
  3. IBUPROFEN. [Suspect]
     Active Substance: IBUPROFEN
     Indication: PAIN
     Route: 048
     Dates: start: 20170215
  4. DOCUSATE NA [Concomitant]
     Active Substance: DOCUSATE
  5. TOPIRAMATE. [Concomitant]
     Active Substance: TOPIRAMATE
  6. GABAPENTIN. [Concomitant]
     Active Substance: GABAPENTIN
  7. QUETIAPINE FUMARATE. [Concomitant]
     Active Substance: QUETIAPINE FUMARATE
  8. SUMATRIPTAN SUCCINATE. [Concomitant]
     Active Substance: SUMATRIPTAN SUCCINATE

REACTIONS (4)
  - Abdominal discomfort [None]
  - Product quality issue [None]
  - Dysgeusia [None]
  - Abdominal pain [None]

NARRATIVE: CASE EVENT DATE: 20170215
